FAERS Safety Report 6655751-5 (Version None)
Quarter: 2010Q1

REPORT INFORMATION
  Report Type: 
  Country: None (occurrence: None)
  Receive Date: 20100329
  Receipt Date: 20100318
  Transmission Date: 20100710
  Serious: Yes (Other)
  Sender: FDA-Public Use
  Company Number: JP-ROCHE-685994

PATIENT
  Age: 60 Year
  Sex: Male

DRUGS (7)
  1. CELLCEPT [Suspect]
     Indication: PROPHYLAXIS AGAINST TRANSPLANT REJECTION
     Dosage: DOSE DECREASED
     Route: 048
  2. CELLCEPT [Suspect]
     Route: 048
  3. TACROLIMUS HYDRATE [Concomitant]
     Dosage: DOSE DECREASED.
     Route: 048
  4. TACROLIMUS HYDRATE [Concomitant]
     Route: 048
  5. METHYLPREDNISOLONE [Concomitant]
     Route: 048
  6. BASILIXIMAB [Concomitant]
     Route: 042
  7. RITUXAN [Concomitant]
     Dosage: ROUTE: INTRAVENOUS (NOT OTHERWISE SPECIFIED
     Route: 042

REACTIONS (3)
  - BLOOD GLUCOSE INCREASED [None]
  - CYTOMEGALOVIRUS INFECTION [None]
  - RENAL IMPAIRMENT [None]
